FAERS Safety Report 8616165 (Version 3)
Quarter: 2012Q4

REPORT INFORMATION
  Report Type: 
  Country: GB (occurrence: GB)
  Receive Date: 20120614
  Receipt Date: 20120915
  Transmission Date: 20130627
  Serious: Yes (Death, Other)
  Sender: FDA-Public Use
  Company Number: GB-ABBOTT-12P-167-0945160-00

PATIENT
  Age: 40 Year
  Sex: Male
  Weight: 104 kg

DRUGS (16)
  1. HUMIRA 40 MG/ 0.8 ML PRE-FILLED SYRINGE [Suspect]
     Indication: CROHN^S DISEASE
     Route: 058
     Dates: start: 20111005
  2. CLARITHROMYCIN [Suspect]
     Indication: PHARYNGITIS
     Route: 048
     Dates: start: 20111028
  3. METHADONE [Concomitant]
     Indication: CROHN^S DISEASE
     Route: 048
     Dates: start: 20111025
  4. METHADONE [Concomitant]
     Indication: PAIN
     Route: 048
  5. ORAMORPH [Concomitant]
     Indication: CROHN^S DISEASE
     Dosage: Divided
     Dates: start: 201102, end: 20111025
  6. ORAMORPH [Concomitant]
     Indication: PAIN
  7. ADCAL D3 [Concomitant]
     Indication: BONE DISORDER
     Route: 048
     Dates: start: 20110808
  8. ENSURE [Concomitant]
     Indication: NUTRITIONAL SUPPORT
     Route: 048
     Dates: start: 20110105
  9. ASCORBIC ACID [Concomitant]
     Indication: PRODUCT USED FOR UNKNOWN INDICATION
     Dosage: 1000 + 10mg (zinc)
     Route: 048
     Dates: start: 20111006
  10. LANSOPRAZOLE [Concomitant]
     Indication: DYSPEPSIA
     Dates: start: 20070219
  11. DIAZEPAM [Concomitant]
     Indication: PRODUCT USED FOR UNKNOWN INDICATION
     Route: 048
     Dates: start: 20111019
  12. VENTOLIN [Concomitant]
     Indication: PRODUCT USED FOR UNKNOWN INDICATION
     Dosage: 100 mcg/puff
  13. VITAMIN BPC CAPSULES [Concomitant]
     Indication: NUTRITIONAL SUPPORT
     Dates: start: 20110623
  14. PARACETAMOL [Concomitant]
     Indication: PAIN
  15. HYDROXYCOBALAMIN [Concomitant]
     Indication: VITAMIN D DEFICIENCY
  16. MST CONTINUS [Concomitant]
     Indication: PAIN
     Route: 048

REACTIONS (42)
  - Toxicity to various agents [Fatal]
  - Potentiating drug interaction [Unknown]
  - Diffuse alveolar damage [Fatal]
  - Crohn^s disease [Fatal]
  - Adverse drug reaction [Unknown]
  - Malaise [Unknown]
  - Pain [Unknown]
  - Pyrexia [Unknown]
  - Oropharyngeal pain [Unknown]
  - Headache [Unknown]
  - Vomiting [Unknown]
  - Dysuria [Unknown]
  - Hiccups [Unknown]
  - Rectal haemorrhage [Unknown]
  - Confusional state [Unknown]
  - Aggression [Unknown]
  - C-reactive protein increased [Unknown]
  - White blood cell count increased [Unknown]
  - Hyperhidrosis [Unknown]
  - Immunosuppression [Unknown]
  - Incorrect dose administered [Unknown]
  - Diplopia [Unknown]
  - Vision blurred [Unknown]
  - Chest pain [Unknown]
  - Dizziness [Unknown]
  - Tremor [Unknown]
  - Ear infection [None]
  - Haemoglobin decreased [None]
  - Refusal of treatment by patient [None]
  - Blood urine [None]
  - Tracheal disorder [None]
  - Somnolence [None]
  - Crohn^s disease [None]
  - Arcus lipoides [None]
  - Scar [None]
  - Bronchial disorder [None]
  - Erythema [None]
  - Pulmonary congestion [None]
  - Pulmonary oedema [None]
  - Left ventricular hypertrophy [None]
  - Hepatomegaly [None]
  - Abdominal adhesions [None]
